FAERS Safety Report 10563689 (Version 3)
Quarter: 2016Q3

REPORT INFORMATION
  Report Type: Spontaneous
  Country: US (occurrence: US)
  Receive Date: 20141104
  Receipt Date: 20160725
  Transmission Date: 20161109
  Serious: Yes (Hospitalization, Disabling, Other)
  Sender: FDA-Public Use
  Company Number: US-009507513-1411USA000512

PATIENT
  Sex: Female

DRUGS (11)
  1. FOSAMAX [Suspect]
     Active Substance: ALENDRONATE SODIUM
     Dosage: UNK UNK, QW
     Route: 048
     Dates: start: 20070203, end: 20070413
  2. TYLENOL [Concomitant]
     Active Substance: ACETAMINOPHEN
     Indication: ROUTINE HEALTH MAINTENANCE
     Dosage: 6 DF, QM
     Route: 065
     Dates: start: 1993
  3. LEVOXYL [Concomitant]
     Active Substance: LEVOTHYROXINE SODIUM
     Indication: HYPOTHYROIDISM
     Dosage: UNK
     Route: 065
     Dates: start: 1982
  4. FOSAMAX [Suspect]
     Active Substance: ALENDRONATE SODIUM
     Indication: OSTEOPOROSIS
     Dosage: 10 MG, QD
     Route: 048
     Dates: start: 1999, end: 19990802
  5. HYDROXYCHLOROQUINE SULFATE. [Concomitant]
     Active Substance: HYDROXYCHLOROQUINE SULFATE
     Indication: RHEUMATOID ARTHRITIS
     Dosage: UNK
     Route: 065
     Dates: start: 1996, end: 201101
  6. VITAMINS (UNSPECIFIED) [Concomitant]
     Active Substance: VITAMINS
     Indication: ROUTINE HEALTH MAINTENANCE
     Dosage: ONE TIME DAILY
     Route: 065
     Dates: start: 1993
  7. FOSAMAX [Suspect]
     Active Substance: ALENDRONATE SODIUM
     Dosage: UNK
     Route: 048
     Dates: start: 2000, end: 2006
  8. FOLIC ACID. [Concomitant]
     Active Substance: FOLIC ACID
     Indication: ROUTINE HEALTH MAINTENANCE
     Dosage: 1 DF, QD
     Route: 065
     Dates: start: 2000, end: 2010
  9. METHOTREXATE. [Concomitant]
     Active Substance: METHOTREXATE
     Indication: RHEUMATOID ARTHRITIS
     Dosage: UNK
     Route: 065
     Dates: start: 1996, end: 201408
  10. CALCIUM (UNSPECIFIED) [Concomitant]
     Active Substance: CALCIUM
     Indication: ROUTINE HEALTH MAINTENANCE
     Dosage: 2 DF, QD
     Route: 065
     Dates: start: 1993
  11. ASCORBIC ACID (+) VITAMIN E [Concomitant]
     Indication: ROUTINE HEALTH MAINTENANCE
     Dosage: 1 DF, QD
     Route: 065
     Dates: start: 1993, end: 2009

REACTIONS (16)
  - Fall [Unknown]
  - Femur fracture [Unknown]
  - Vitamin D deficiency [Unknown]
  - Fall [Unknown]
  - Mitral valve prolapse [Unknown]
  - Electrolyte imbalance [Recovered/Resolved]
  - Pubis fracture [Unknown]
  - Hyperkeratosis [Unknown]
  - Rheumatoid arthritis [Unknown]
  - Macular degeneration [Unknown]
  - Oral surgery [Unknown]
  - Complication associated with device [Unknown]
  - Endodontic procedure [Unknown]
  - Haemorrhagic stroke [Unknown]
  - Anaemia [Unknown]
  - Vasculitis [Unknown]

NARRATIVE: CASE EVENT DATE: 200105
